FAERS Safety Report 4643443-3 (Version None)
Quarter: 2005Q2

REPORT INFORMATION
  Report Type: 
  Country: None (occurrence: None)
  Receive Date: 20050324
  Receipt Date: 20050218
  Transmission Date: 20051028
  Serious: Yes (Other)
  Sender: FDA-Public Use
  Company Number: 212571

PATIENT
  Age: 58 Year
  Sex: Male

DRUGS (8)
  1. AVASTIN [Suspect]
     Indication: GASTROINTESTINAL CARCINOMA
     Dosage: 450 MG,Q2W,INTRAVENOUS
     Route: 042
     Dates: start: 20040830
  2. FLUOROURACIL [Concomitant]
  3. OXALIPLATIN (OXALIPLATIN) [Concomitant]
  4. LEUCOVORIN CALCIUM [Concomitant]
  5. SYNTHROID [Concomitant]
  6. DIOVAN [Concomitant]
  7. ASPIRIN [Concomitant]
  8. INDOMETHACIN [Concomitant]

REACTIONS (2)
  - PLATELET COUNT DECREASED [None]
  - TRANSIENT ISCHAEMIC ATTACK [None]
